FAERS Safety Report 18958765 (Version 2)
Quarter: 2021Q2

REPORT INFORMATION
  Report Type: Report from Study
  Country: None (occurrence: CA)
  Receive Date: 20210302
  Receipt Date: 20210531
  Transmission Date: 20210717
  Serious: Yes (Hospitalization, Other)
  Sender: FDA-Public Use
  Company Number: CA-ABBVIE-21K-028-3793483-00

PATIENT
  Age: 73 Year
  Sex: Male

DRUGS (2)
  1. LUPRON DEPOT [Suspect]
     Active Substance: LEUPROLIDE ACETATE
     Route: 030
  2. LUPRON DEPOT [Suspect]
     Active Substance: LEUPROLIDE ACETATE
     Indication: PROSTATE CANCER
     Route: 030
     Dates: start: 20200903

REACTIONS (8)
  - Blood potassium decreased [Recovering/Resolving]
  - Impaired self-care [Not Recovered/Not Resolved]
  - Blood magnesium decreased [Recovering/Resolving]
  - Visual impairment [Not Recovered/Not Resolved]
  - Fall [Unknown]
  - Mobility decreased [Not Recovered/Not Resolved]
  - Brain neoplasm [Not Recovered/Not Resolved]
  - Asthenia [Unknown]

NARRATIVE: CASE EVENT DATE: 20210509
